FAERS Safety Report 10469165 (Version 1)
Quarter: 2014Q3

REPORT INFORMATION
  Report Type: Spontaneous
  Country: US (occurrence: None)
  Receive Date: 20140922
  Receipt Date: 20140922
  Transmission Date: 20150326
  Serious: Yes (Other)
  Sender: FDA-Public Use
  Company Number: None

PATIENT
  Age: 29 Year
  Sex: Female
  Weight: 64.86 kg

DRUGS (1)
  1. CIPROFLOXACIN HYDROCHLORIDE. [Suspect]
     Active Substance: CIPROFLOXACIN HYDROCHLORIDE
     Indication: URINARY TRACT INFECTION
     Route: 048
     Dates: start: 20140903, end: 20140908

REACTIONS (6)
  - Hyperacusis [None]
  - Chest pain [None]
  - Pain in extremity [None]
  - Pain [None]
  - Burning sensation [None]
  - Urticaria [None]

NARRATIVE: CASE EVENT DATE: 20140905
